FAERS Safety Report 21221793 (Version 1)
Quarter: 2022Q3

REPORT INFORMATION
  Report Type: Spontaneous
  Country: US (occurrence: US)
  Receive Date: 20220817
  Receipt Date: 20220817
  Transmission Date: 20221027
  Serious: No
  Sender: FDA-Public Use
  Company Number: US-TORRENT-00011959

PATIENT
  Age: 56 Year
  Sex: Female

DRUGS (1)
  1. DAPSONE [Suspect]
     Active Substance: DAPSONE
     Indication: Product used for unknown indication
     Dosage: UNKNOWN
     Route: 065
     Dates: start: 202207

REACTIONS (4)
  - Rash [Unknown]
  - Drug ineffective [Unknown]
  - Product appearance confusion [Unknown]
  - Product physical consistency issue [Unknown]
